FAERS Safety Report 10026423 (Version 2)
Quarter: 2014Q2

REPORT INFORMATION
  Report Type: Report from Study
  Country: JP (occurrence: JP)
  Receive Date: 20140321
  Receipt Date: 20140416
  Transmission Date: 20141212
  Serious: Yes (Death, Other)
  Sender: FDA-Public Use
  Company Number: JP-ROCHE-1363849

PATIENT
  Sex: 0

DRUGS (2)
  1. RITUXIMAB [Suspect]
     Indication: PROPHYLAXIS AGAINST TRANSPLANT REJECTION
     Route: 065
  2. METHYLPREDNISOLONE [Suspect]
     Indication: PROPHYLAXIS AGAINST TRANSPLANT REJECTION
     Route: 065

REACTIONS (7)
  - Hepatocellular carcinoma [Fatal]
  - Post transplant lymphoproliferative disorder [Unknown]
  - Bile duct stenosis [Unknown]
  - Diabetes mellitus [Unknown]
  - Portal vein occlusion [Unknown]
  - Intestinal haemorrhage [Unknown]
  - Hepatitis B [Unknown]
